FAERS Safety Report 7012695-7 (Version None)
Quarter: 2010Q3

REPORT INFORMATION
  Report Type: 
  Country: None (occurrence: None)
  Receive Date: 20100924
  Receipt Date: 20100915
  Transmission Date: 20110219
  Serious: Yes (Hospitalization, Other)
  Sender: FDA-Public Use
  Company Number: JP-ROCHE-727740

PATIENT
  Age: 55 Year
  Sex: Male

DRUGS (3)
  1. AVASTIN [Suspect]
     Indication: LUNG ADENOCARCINOMA
     Route: 041
     Dates: start: 20100611
  2. CARBOPLATIN [Concomitant]
     Dosage: NOTE: DOSAGE IS UNCERTAIN.
     Route: 041
  3. ALIMTA [Concomitant]
     Dosage: NOTE: DOSAGE IS UNCERTAIN.
     Route: 041

REACTIONS (3)
  - ATELECTASIS [None]
  - HAEMOTHORAX [None]
  - PYOTHORAX [None]
